FAERS Safety Report 5096017-7 (Version None)
Quarter: 2006Q3

REPORT INFORMATION
  Report Type: 
  Country: None (occurrence: None)
  Receive Date: 20060905
  Receipt Date: 20060825
  Transmission Date: 20061208
  Serious: Yes (Other)
  Sender: FDA-Public Use
  Company Number: RU-GLAXOSMITHKLINE-B0436726A

PATIENT
  Age: 22 Year
  Sex: Female
  Weight: 55 kg

DRUGS (5)
  1. LAMICTAL [Suspect]
     Indication: EPILEPSY
     Route: 065
  2. DEPAKENE [Concomitant]
     Indication: EPILEPSY
     Route: 048
  3. PRIMIDONE [Concomitant]
     Indication: EPILEPSY
     Dosage: 500MG PER DAY
     Route: 048
  4. CARBAMAZEPINUM [Concomitant]
     Indication: EPILEPSY
     Dosage: 500MG PER DAY
     Route: 048
  5. HYPOTENSIVE AGENT [Concomitant]
     Route: 048

REACTIONS (2)
  - CONVULSION [None]
  - GENERAL PHYSICAL HEALTH DETERIORATION [None]
